FAERS Safety Report 4494523-7 (Version None)
Quarter: 2004Q4

REPORT INFORMATION
  Report Type: 
  Country: None (occurrence: None)
  Receive Date: 20041105
  Receipt Date: 20040915
  Transmission Date: 20050328
  Serious: Yes (Death, Other)
  Sender: FDA-Public Use
  Company Number: JP-MERCK-0410USA02029

PATIENT
  Age: 70 Year
  Sex: Female
  Weight: 47 kg

DRUGS (11)
  1. DECADRON [Suspect]
     Indication: MULTIPLE MYELOMA
     Route: 048
     Dates: start: 20031222, end: 20040118
  2. DECADRON [Suspect]
     Route: 048
     Dates: start: 20040119, end: 20040125
  3. DECADRON [Suspect]
     Route: 048
     Dates: start: 20040126, end: 20040201
  4. DECADRON [Suspect]
     Route: 048
     Dates: start: 20040202, end: 20040208
  5. DECADRON PHOSPHATE [Suspect]
     Indication: MULTIPLE MYELOMA
     Route: 042
     Dates: start: 20030409, end: 20030412
  6. DECADRON PHOSPHATE [Suspect]
     Route: 042
     Dates: start: 20030509, end: 20030512
  7. ADRIAMYCIN PFS [Suspect]
     Indication: MULTIPLE MYELOMA
     Route: 042
     Dates: start: 20030409, end: 20030412
  8. ADRIAMYCIN PFS [Suspect]
     Route: 042
     Dates: start: 20030509, end: 20030512
  9. ONCOVIN [Suspect]
     Indication: MULTIPLE MYELOMA
     Route: 042
     Dates: start: 20030509, end: 20030512
  10. ONCOVIN [Suspect]
     Route: 042
     Dates: start: 20030409, end: 20030412
  11. THALIDOMIDE [Concomitant]
     Indication: MULTIPLE MYELOMA
     Route: 048
     Dates: start: 20031222, end: 20040507

REACTIONS (5)
  - DEMENTIA [None]
  - INSOMNIA [None]
  - MULTIPLE MYELOMA [None]
  - PNEUMONIA [None]
  - RESTLESSNESS [None]
